FAERS Safety Report 8975735 (Version 1)
Quarter: 2012Q4

REPORT INFORMATION
  Report Type: 
  Country: US (occurrence: US)
  Receive Date: 20121219
  Receipt Date: 20121219
  Transmission Date: 20130627
  Serious: No
  Sender: FDA-Public Use
  Company Number: US-AMGEN-USASP2012069552

PATIENT
  Age: 69 Year
  Sex: Female
  Weight: 66.67 kg

DRUGS (2)
  1. PROLIA [Suspect]
     Indication: OSTEOPOROSIS POSTMENOPAUSAL
     Dosage: 60 mg, q6mo
     Route: 058
     Dates: start: 20120529
  2. TESTOSTERONE [Concomitant]
     Dosage: UNK
     Route: 048

REACTIONS (6)
  - Wrist fracture [Unknown]
  - Impaired healing [Unknown]
  - Alopecia [Unknown]
  - Blister [Unknown]
  - Rash [Unknown]
  - Erythema [Unknown]
